FAERS Safety Report 11204023 (Version 1)
Quarter: 2015Q2

REPORT INFORMATION
  Report Type: Spontaneous
  Country: US (occurrence: US)
  Receive Date: 20150619
  Receipt Date: 20150619
  Transmission Date: 20150821
  Serious: No
  Sender: FDA-Public Use
  Company Number: US-CELGENEUS-USA-2015054793

PATIENT
  Age: 50 Year
  Sex: Female

DRUGS (1)
  1. OTEZLA [Suspect]
     Active Substance: APREMILAST
     Indication: PSORIASIS
     Dosage: 60 MILLIGRAM
     Route: 048
     Dates: start: 20150512, end: 20150515

REACTIONS (10)
  - Headache [Unknown]
  - Insomnia [Unknown]
  - Irritability [Unknown]
  - Flushing [Unknown]
  - Abdominal pain upper [Unknown]
  - Nausea [Unknown]
  - Localised infection [Unknown]
  - Weight decreased [Unknown]
  - Peripheral swelling [Unknown]
  - Depression [Unknown]

NARRATIVE: CASE EVENT DATE: 201505
